FAERS Safety Report 8350958-3 (Version None)
Quarter: 2012Q2

REPORT INFORMATION
  Report Type: 
  Country: None (occurrence: None)
  Receive Date: 20120510
  Receipt Date: 20120427
  Transmission Date: 20120825
  Serious: Yes (Life-Threatening, Other)
  Sender: FDA-Public Use
  Company Number: FR-ELI_LILLY_AND_COMPANY-FR200710001689

PATIENT
  Sex: Female

DRUGS (15)
  1. NOCTRAN 10 [Concomitant]
     Dosage: 10 MG, DAILY (1/D)
     Route: 048
  2. ALDACTONE [Concomitant]
     Route: 048
  3. PRAVASTATIN [Concomitant]
     Route: 065
  4. EUTHYRAL [Concomitant]
     Indication: HYPOTHYROIDISM
     Dosage: 25 UG, DAILY (1/D)
     Route: 048
  5. PROZAC [Concomitant]
     Route: 048
  6. ATARAX [Concomitant]
     Dosage: 25 MG, DAILY (1/D)
     Route: 048
     Dates: end: 20070607
  7. EUTHYRAL [Concomitant]
     Dosage: 5 UG, DAILY (1/D)
     Route: 048
  8. NOCTRAN 10 [Concomitant]
     Dosage: 0.75 MG, DAILY (1/D)
     Route: 048
  9. MEDIATOR [Concomitant]
     Dosage: 150 MG, 3/D
     Route: 048
     Dates: start: 20070511, end: 20070607
  10. ZYPREXA [Suspect]
     Dosage: 10 MG, DAILY (1/D)
     Route: 048
     Dates: end: 20070607
  11. VALPROIC ACID [Concomitant]
     Dosage: 300 MG, 2/D
     Route: 048
     Dates: end: 20070607
  12. RAMIPRIL [Concomitant]
     Route: 065
  13. NOCTRAN 10 [Concomitant]
     Dosage: 7.5 MG, DAILY (1/D)
     Route: 048
     Dates: end: 20070607
  14. NEURONTIN [Concomitant]
     Route: 048
  15. LASIX [Concomitant]
     Route: 048

REACTIONS (3)
  - CARDIAC FAILURE [None]
  - CARDIAC ARREST [None]
  - TORSADE DE POINTES [None]
